FAERS Safety Report 6242917-1 (Version None)
Quarter: 2009Q2

REPORT INFORMATION
  Report Type: 
  Country: None (occurrence: None)
  Receive Date: 20090624
  Receipt Date: 20090608
  Transmission Date: 20091009
  Serious: Yes (Other)
  Sender: FDA-Public Use
  Company Number: CA-BAYER-200922600NA

PATIENT
  Age: 32 Year
  Sex: Female

DRUGS (1)
  1. YAZ [Suspect]
     Indication: DRUG USE FOR UNKNOWN INDICATION
     Dosage: TOTAL DAILY DOSE: 1 DF
     Route: 048
     Dates: start: 20090201

REACTIONS (6)
  - CERVIX DISORDER [None]
  - FATIGUE [None]
  - FEELING ABNORMAL [None]
  - FOOD CRAVING [None]
  - METRORRHAGIA [None]
  - NAUSEA [None]
